FAERS Safety Report 6767887-9 (Version None)
Quarter: 2010Q2

REPORT INFORMATION
  Report Type: 
  Country: None (occurrence: None)
  Receive Date: 20100614
  Receipt Date: 20100614
  Transmission Date: 20101027
  Serious: Yes (Other)
  Sender: FDA-Public Use
  Company Number: None

PATIENT
  Sex: Male
  Weight: 7.9379 kg

DRUGS (2)
  1. CONCENTRATED TYLENOL INFANT DROPS [Suspect]
     Indication: TEETHING
     Dosage: STANDARD DOSE EVERY 8 HR MOUTH
     Route: 048
     Dates: start: 20100401
  2. CONCENTRATED MOTRIN INFANTS DROPS [Suspect]
     Indication: FEELING COLD
     Dosage: STANDARD DOSE EVERY 8 HR MOUTH
     Route: 048
     Dates: start: 20100401

REACTIONS (1)
  - DIARRHOEA HAEMORRHAGIC [None]
